FAERS Safety Report 7470316-3 (Version None)
Quarter: 2011Q2

REPORT INFORMATION
  Report Type: 
  Country: None (occurrence: None)
  Receive Date: 20110510
  Receipt Date: 20110427
  Transmission Date: 20111010
  Serious: Yes (Other)
  Sender: FDA-Public Use
  Company Number: US-BAYER-2011-037493

PATIENT
  Age: 75 Year
  Sex: Female
  Weight: 53.061 kg

DRUGS (3)
  1. ASPIRIN [Suspect]
  2. ALEVE (CAPLET) [Suspect]
     Indication: EAR PAIN
     Dosage: 1 DF, QD, BOTTLE COUNT 24S
     Route: 048
     Dates: start: 20110421, end: 20110423
  3. ANTIHYPERTENSIVES [Concomitant]
     Dosage: UNK

REACTIONS (2)
  - HAEMORRHAGE [None]
  - HAEMATOCHEZIA [None]
